FAERS Safety Report 16430008 (Version 6)
Quarter: 2019Q4

REPORT INFORMATION
  Report Type: Spontaneous
  Country: US (occurrence: US)
  Receive Date: 20190614
  Receipt Date: 20191113
  Transmission Date: 20200122
  Serious: Yes (Other)
  Sender: FDA-Public Use
  Company Number: US-PFIZER INC-2019250214

PATIENT
  Age: 52 Year
  Sex: Female
  Weight: 52.15 kg

DRUGS (4)
  1. LYRICA [Suspect]
     Active Substance: PREGABALIN
     Indication: NEURALGIA
     Dosage: 50 MG, 3X/DAY
     Route: 048
     Dates: start: 201801
  2. METFORMIN [Concomitant]
     Active Substance: METFORMIN HYDROCHLORIDE
     Indication: DIABETES MELLITUS
     Dosage: UNK (1000MG IN THE MORNING; 750MG EXTENDED RELASE AT NIGHT)
  3. LUPRON [Concomitant]
     Active Substance: LEUPROLIDE ACETATE
     Indication: MENOPAUSE
     Dosage: GETS A SHOT EVERY 3 OR 4 MONTHS
  4. LYRICA [Suspect]
     Active Substance: PREGABALIN
     Indication: NEUROPATHY PERIPHERAL
     Dosage: 50 MG, 1X/DAY

REACTIONS (5)
  - Breast cancer [Unknown]
  - Therapeutic response unexpected [Unknown]
  - Pre-existing condition improved [Unknown]
  - Intentional product use issue [Unknown]
  - Visual impairment [Unknown]
